FAERS Safety Report 5192525-9 (Version None)
Quarter: 2006Q4

REPORT INFORMATION
  Report Type: 
  Country: None (occurrence: None)
  Receive Date: 20061220
  Receipt Date: 20061208
  Transmission Date: 20070319
  Serious: Yes (Other)
  Sender: FDA-Public Use
  Company Number: RENA-12007

PATIENT
  Age: 57 Year
  Sex: Female

DRUGS (2)
  1. RENAGEL [Suspect]
     Indication: HYPERPHOSPHATAEMIA
     Dosage: 2.25 G DAILY PO
     Route: 048
     Dates: start: 20050725
  2. RENAGEL [Suspect]
     Indication: HYPERPHOSPHATAEMIA
     Dosage: 3.75 G QD PO
     Route: 048

REACTIONS (4)
  - DIVERTICULUM [None]
  - GASTROINTESTINAL HAEMORRHAGE [None]
  - LARGE INTESTINAL HAEMORRHAGE [None]
  - MELAENA [None]
